FAERS Safety Report 8103726-1 (Version None)
Quarter: 2012Q1

REPORT INFORMATION
  Report Type: 
  Country: None (occurrence: None)
  Receive Date: 20120201
  Receipt Date: 20110819
  Transmission Date: 20120608
  Serious: Yes (Life-Threatening, Hospitalization, Disabling, Other)
  Sender: FDA-Public Use
  Company Number: US-BAYER-2011-031196

PATIENT
  Sex: Male

DRUGS (2)
  1. BETASERON [Suspect]
     Indication: MULTIPLE SCLEROSIS
     Dosage: 8 MIU, QOD
     Route: 058
     Dates: start: 20070201
  2. ALCOWIPES [Suspect]

REACTIONS (12)
  - INJECTION SITE PAIN [None]
  - INJECTION SITE WARMTH [None]
  - SCAR [None]
  - BACTERIAL INFECTION [None]
  - INJECTION SITE INFECTION [None]
  - OEDEMA PERIPHERAL [None]
  - INJECTION SITE SWELLING [None]
  - INJURY [None]
  - DYSSTASIA [None]
  - INJECTION SITE ERYTHEMA [None]
  - PRODUCT QUALITY ISSUE [None]
  - PRODUCT CONTAMINATION [None]
